FAERS Safety Report 4975066-0 (Version None)
Quarter: 2006Q2

REPORT INFORMATION
  Report Type: 
  Country: None (occurrence: None)
  Receive Date: 20060418
  Receipt Date: 20060220
  Transmission Date: 20061013
  Serious: Yes (Life-Threatening)
  Sender: FDA-Public Use
  Company Number: GB-ROCHE-437589

PATIENT
  Age: 69 Year
  Sex: Female
  Weight: 119 kg

DRUGS (6)
  1. XENICAL [Suspect]
     Indication: OBESITY
     Route: 048
     Dates: start: 20060127, end: 20060220
  2. VERAPAMIL [Concomitant]
     Dates: end: 20030615
  3. CLOPIDOGREL [Concomitant]
  4. CO-CODAMOL [Concomitant]
  5. GLUCOSAMINE [Concomitant]
  6. TERBUTALINE SULFATE [Concomitant]

REACTIONS (2)
  - MALAISE [None]
  - PALPITATIONS [None]
